FAERS Safety Report 17393417 (Version 5)
Quarter: 2021Q1

REPORT INFORMATION
  Report Type: Report from Study
  Country: None (occurrence: NL)
  Receive Date: 20200208
  Receipt Date: 20210120
  Transmission Date: 20210419
  Serious: Yes (Other)
  Sender: FDA-Public Use
  Company Number: NL-ABBVIE-18S-114-2599097-00

PATIENT
  Sex: Male
  Weight: 95 kg

DRUGS (6)
  1. STALEVO [Concomitant]
     Active Substance: CARBIDOPA\ENTACAPONE\LEVODOPA
     Indication: PRODUCT USED FOR UNKNOWN INDICATION
  2. DUODOPA [Suspect]
     Active Substance: CARBIDOPA\LEVODOPA
     Dosage: MD: 18.5, CD: 2.6, ED: 4.0
     Route: 050
     Dates: start: 20181212
  3. MADOPAR DISPER [Concomitant]
     Active Substance: BENSERAZIDE HYDROCHLORIDE\LEVODOPA
     Indication: PRODUCT USED FOR UNKNOWN INDICATION
  4. ACETYLSALICYLIC ACID [Concomitant]
     Active Substance: ASPIRIN
     Indication: PRODUCT USED FOR UNKNOWN INDICATION
  5. CARBIDOPA LEVODOPA 125 RET [Concomitant]
     Indication: PRODUCT USED FOR UNKNOWN INDICATION
  6. DUODOPA [Suspect]
     Active Substance: CARBIDOPA\LEVODOPA
     Indication: PARKINSON^S DISEASE
     Dosage: MD, 10.5 CD 2.6 ED 4
     Route: 050
     Dates: start: 20181203, end: 201812

REACTIONS (32)
  - Gait disturbance [Not Recovered/Not Resolved]
  - Hyperkinesia [Recovering/Resolving]
  - Incontinence [Not Recovered/Not Resolved]
  - Stoma site reaction [Recovering/Resolving]
  - Bradykinesia [Recovered/Resolved]
  - Bradykinesia [Not Recovered/Not Resolved]
  - Abnormal dreams [Not Recovered/Not Resolved]
  - Dyskinesia [Not Recovered/Not Resolved]
  - Muscle rigidity [Not Recovered/Not Resolved]
  - Nocturia [Not Recovered/Not Resolved]
  - Stoma site erythema [Not Recovered/Not Resolved]
  - Medical device site dryness [Not Recovered/Not Resolved]
  - Freezing phenomenon [Recovered/Resolved]
  - Constipation [Recovered/Resolved]
  - Stoma site erythema [Recovered/Resolved]
  - On and off phenomenon [Not Recovered/Not Resolved]
  - Tension [Recovering/Resolving]
  - Mastication disorder [Not Recovered/Not Resolved]
  - Tension [Not Recovered/Not Resolved]
  - Mobility decreased [Unknown]
  - Medical device site injury [Not Recovered/Not Resolved]
  - Gait disturbance [Recovered/Resolved]
  - Stoma site discharge [Not Recovered/Not Resolved]
  - Abnormal faeces [Not Recovered/Not Resolved]
  - Hypokinesia [Not Recovered/Not Resolved]
  - Stoma site pain [Recovering/Resolving]
  - Stoma site discharge [Not Recovered/Not Resolved]
  - Stoma site inflammation [Not Recovered/Not Resolved]
  - Weight increased [Recovered/Resolved]
  - Giant cell tumour of tendon sheath [Recovered/Resolved]
  - Oral surgery [Unknown]
  - Stoma site pain [Not Recovered/Not Resolved]

NARRATIVE: CASE EVENT DATE: 2018
